FAERS Safety Report 5729188-7 (Version None)
Quarter: 2008Q2

REPORT INFORMATION
  Report Type: 
  Country: None (occurrence: None)
  Receive Date: 20080506
  Receipt Date: 20080430
  Transmission Date: 20081010
  Serious: Yes (Hospitalization)
  Sender: FDA-Public Use
  Company Number: DE-BRISTOL-MYERS SQUIBB COMPANY-14175574

PATIENT
  Age: 52 Year
  Sex: Female
  Weight: 66 kg

DRUGS (7)
  1. CETUXIMAB [Suspect]
     Indication: NON-SMALL CELL LUNG CANCER
     Dosage: 2MG/ML. MOST RECENT INFUSION WAS ON 16APR08
     Route: 042
     Dates: start: 20080213
  2. CARBOPLATIN [Suspect]
     Indication: NON-SMALL CELL LUNG CANCER
     Dosage: AUC 5. MOST RECENT INFUSION WAS ON 02APR08
     Route: 042
     Dates: start: 20080213
  3. GEMCITABINE [Suspect]
     Indication: NON-SMALL CELL LUNG CANCER
     Dosage: MOST RECENT INFUSION WAS ON 09APR08
     Route: 042
     Dates: start: 20080213
  4. DECORTIN [Concomitant]
     Indication: OEDEMA
     Dates: start: 20080129
  5. OMEPRAZOLE [Concomitant]
     Indication: PROPHYLAXIS
     Dates: start: 20080124
  6. EUTHYROX [Concomitant]
     Indication: THYROIDECTOMY
  7. OXIS [Concomitant]
     Dates: start: 20080125

REACTIONS (1)
  - ABSCESS ORAL [None]
